FAERS Safety Report 21031926 (Version 1)
Quarter: 2022Q3

REPORT INFORMATION
  Report Type: Report from Study
  Country: US (occurrence: US)
  Receive Date: 20220701
  Receipt Date: 20220701
  Transmission Date: 20221026
  Serious: Yes (Hospitalization)
  Sender: FDA-Public Use
  Company Number: US-BoehringerIngelheim-2022-BI-160287

PATIENT
  Sex: Male

DRUGS (2)
  1. OFEV [Suspect]
     Active Substance: NINTEDANIB
     Indication: Idiopathic pulmonary fibrosis
     Route: 048
     Dates: start: 20220310, end: 20220316
  2. PREDNISONE [Concomitant]
     Active Substance: PREDNISONE
     Dates: start: 2022, end: 2022

REACTIONS (7)
  - Diarrhoea [Unknown]
  - Pneumonia [Unknown]
  - Haemoptysis [Unknown]
  - Productive cough [Recovering/Resolving]
  - Upper respiratory tract infection [Unknown]
  - Discomfort [Unknown]
  - Sputum discoloured [Recovered/Resolved]
